FAERS Safety Report 8284426-4 (Version None)
Quarter: 2012Q2

REPORT INFORMATION
  Report Type: 
  Country: None (occurrence: None)
  Receive Date: 20120413
  Receipt Date: 20111101
  Transmission Date: 20120825
  Serious: No
  Sender: FDA-Public Use
  Company Number: US-ASTRAZENECA-2011SE54844

PATIENT
  Age: 72 Year
  Sex: Female

DRUGS (3)
  1. PAIN PILLS [Concomitant]
  2. NEXIUM [Suspect]
     Route: 048
  3. NEURONTIN [Concomitant]

REACTIONS (2)
  - HERPES ZOSTER [None]
  - PAIN [None]
